FAERS Safety Report 9791056 (Version 1)
Quarter: 2013Q4

REPORT INFORMATION
  Report Type: Spontaneous
  Country: US (occurrence: US)
  Receive Date: 20131231
  Receipt Date: 20131231
  Transmission Date: 20140711
  Serious: No
  Sender: FDA-Public Use
  Company Number: US-BIOGENIDEC-2013BI111597

PATIENT
  Age: 53 Year
  Sex: Female
  Weight: 64 kg

DRUGS (8)
  1. TECFIDERA [Suspect]
     Indication: PRODUCT USED FOR UNKNOWN INDICATION
     Route: 048
  2. TECFIDERA [Suspect]
     Indication: PRODUCT USED FOR UNKNOWN INDICATION
     Route: 048
  3. BAYER [Concomitant]
  4. ADVIL [Concomitant]
  5. LYRICA [Concomitant]
  6. CALCIUM [Concomitant]
  7. VIT D3 [Concomitant]
  8. STOOL SOFTEN [Concomitant]

REACTIONS (3)
  - Abdominal distension [Unknown]
  - Nausea [Unknown]
  - Flushing [Unknown]
